FAERS Safety Report 17091922 (Version 4)
Quarter: 2021Q4

REPORT INFORMATION
  Report Type: Spontaneous
  Country: US (occurrence: US)
  Receive Date: 20191129
  Receipt Date: 20211207
  Transmission Date: 20220303
  Serious: Yes (Other)
  Sender: FDA-Public Use
  Company Number: US-GILEAD-2019-0440023

PATIENT
  Age: 57 Year
  Sex: Female
  Weight: 77.098 kg

DRUGS (13)
  1. VIREAD [Suspect]
     Active Substance: TENOFOVIR DISOPROXIL FUMARATE
     Indication: HIV infection
     Dosage: UNK
     Route: 048
     Dates: start: 201010, end: 2017
  2. TRUVADA [Suspect]
     Active Substance: EMTRICITABINE\TENOFOVIR DISOPROXIL FUMARATE
     Indication: HIV infection
     Dosage: UNK
     Route: 048
     Dates: start: 201211, end: 201710
  3. TRUVADA [Suspect]
     Active Substance: EMTRICITABINE\TENOFOVIR DISOPROXIL FUMARATE
     Dosage: UNK
     Dates: start: 2010, end: 2018
  4. DESCOVY [Concomitant]
     Active Substance: EMTRICITABINE\TENOFOVIR ALAFENAMIDE FUMARATE
  5. VITAMIN D3 [Concomitant]
     Active Substance: CHOLECALCIFEROL
  6. ACETAMINOPHEN [Concomitant]
     Active Substance: ACETAMINOPHEN
  7. AMOXICILLIN [Concomitant]
     Active Substance: AMOXICILLIN
  8. ASPIRIN [Concomitant]
     Active Substance: ASPIRIN
  9. BACTRIM [Concomitant]
     Active Substance: SULFAMETHOXAZOLE\TRIMETHOPRIM
  10. LASIX [Concomitant]
     Active Substance: FUROSEMIDE
  11. PENICILLIN [Concomitant]
     Active Substance: PENICILLIN
  12. NORVIR [Concomitant]
     Active Substance: RITONAVIR
  13. REYATAZ [Concomitant]
     Active Substance: ATAZANAVIR SULFATE

REACTIONS (10)
  - Osteoporosis [Unknown]
  - Multiple fractures [Unknown]
  - Hip fracture [Unknown]
  - Joint arthroplasty [Unknown]
  - Osteonecrosis [Unknown]
  - Emotional distress [Not Recovered/Not Resolved]
  - Bone loss [Unknown]
  - Osteopenia [Not Recovered/Not Resolved]
  - Pain [Not Recovered/Not Resolved]
  - Bone density decreased [Unknown]

NARRATIVE: CASE EVENT DATE: 20171101
